FAERS Safety Report 6929942-X (Version None)
Quarter: 2010Q3

REPORT INFORMATION
  Report Type: 
  Country: None (occurrence: None)
  Receive Date: 20100817
  Receipt Date: 20100817
  Transmission Date: 20110219
  Serious: No
  Sender: FDA-Public Use
  Company Number: None

PATIENT
  Sex: Male
  Weight: 73.4827 kg

DRUGS (2)
  1. RAMIPRIL [Suspect]
     Indication: HYPERTENSION
     Dosage: 2.5 MG 1 EVERY MORNING
     Dates: start: 20100708, end: 20100731
  2. ALTACE [Suspect]
     Dosage: STARTED IN HOSP.

REACTIONS (1)
  - RENAL INJURY [None]
